FAERS Safety Report 8037584-0 (Version None)
Quarter: 2012Q1

REPORT INFORMATION
  Report Type: 
  Country: None (occurrence: None)
  Receive Date: 20120111
  Receipt Date: 20120104
  Transmission Date: 20120608
  Serious: Yes (Death)
  Sender: FDA-Public Use
  Company Number: US-BAYER-2011-044353

PATIENT
  Age: 32 Year
  Sex: Female
  Weight: 113.38 kg

DRUGS (13)
  1. TUSSIONEX [Concomitant]
     Indication: COUGH
     Dosage: UNK
     Route: 048
     Dates: start: 20090311
  2. LEVAQUIN [Concomitant]
     Dosage: 500 MG, QD
     Route: 048
     Dates: start: 20090327
  3. PREDNISONE TAB [Concomitant]
     Indication: DYSPNOEA
     Dosage: 10 MG, UNK
     Dates: start: 20090421, end: 20090427
  4. PROAIR HFA [Concomitant]
     Indication: DYSPNOEA
     Dosage: UNK
     Route: 048
  5. BENZONATATE [Concomitant]
     Dosage: 4 MG, UNK
     Route: 048
  6. YASMIN [Suspect]
     Indication: MENSTRUATION IRREGULAR
     Dosage: UNK
     Dates: start: 20080101, end: 20080701
  7. DROSPIRENONE AND ETHINYL ESTRADIOL [Suspect]
     Indication: MENSTRUATION IRREGULAR
     Dosage: UNK
     Dates: start: 20080701, end: 20090427
  8. AUGMENTIN '125' [Concomitant]
     Dosage: UNK
     Route: 048
     Dates: start: 20090302
  9. PULMICORT [Concomitant]
     Indication: DYSPNOEA
     Dosage: 180 MCG/24HR, QD
     Route: 048
  10. AMOXICILLIN [Concomitant]
     Dosage: 125 MG, UNK
     Route: 048
  11. AMOXICILLIN [Concomitant]
     Dosage: 875 MG, UNK
  12. METHYLPREDNISOLONE ACETATE [Concomitant]
     Dosage: 4 MG, UNK
     Route: 048
     Dates: start: 20090302
  13. STEROID SHOT, UNSPECIFIED [Concomitant]

REACTIONS (5)
  - PAIN [None]
  - DYSPNOEA [None]
  - EMOTIONAL DISTRESS [None]
  - PULMONARY EMBOLISM [None]
  - FALL [None]
